FAERS Safety Report 24327912 (Version 2)
Quarter: 2024Q4

REPORT INFORMATION
  Report Type: Spontaneous
  Country: IT (occurrence: IT)
  Receive Date: 20240917
  Receipt Date: 20241009
  Transmission Date: 20250115
  Serious: Yes (Other)
  Sender: PFIZER
  Company Number: None

PATIENT
  Age: 62 Year
  Sex: Female
  Weight: 70 kg

DRUGS (13)
  1. IRINOTECAN HYDROCHLORIDE [Suspect]
     Active Substance: IRINOTECAN HYDROCHLORIDE
     Indication: Adenocarcinoma pancreas
     Dosage: 200 MG IN 250 ML GLUCOSE 5%, Q15
     Route: 042
     Dates: start: 20240708
  2. DEXTROSE [Suspect]
     Active Substance: DEXTROSE MONOHYDRATE
     Indication: Vehicle solution use
     Dosage: 250 ML
     Route: 042
     Dates: start: 20240708
  3. GRANISETRON [Concomitant]
     Active Substance: GRANISETRON
     Indication: Chemotherapy side effect prophylaxis
     Dosage: 3 MG,  IN 100 ML NACL 0,9%
     Route: 042
  4. SODIUM CHLORIDE [Concomitant]
     Active Substance: SODIUM CHLORIDE
     Indication: Vehicle solution use
     Dosage: 100 ML
     Route: 042
  5. SODIUM CHLORIDE [Concomitant]
     Active Substance: SODIUM CHLORIDE
     Dosage: 250 ML
     Route: 042
  6. OXALIPLATIN [Concomitant]
     Active Substance: OXALIPLATIN
     Indication: Adenocarcinoma pancreas
     Dosage: 100 MG, IN 500 ML GLUCOSE 5%, Q15
     Route: 042
     Dates: start: 20240708
  7. FLUOROURACIL [Concomitant]
     Active Substance: FLUOROURACIL
     Indication: Adenocarcinoma pancreas
     Dosage: 600 MG IV BOLUS, THEN 3000 MG IN NACL 0,9% FOR 2880^, Q15
     Route: 040
     Dates: start: 20240708
  8. FLUOROURACIL [Concomitant]
     Active Substance: FLUOROURACIL
     Dosage: 600 MG IV BOLUS, THEN 3000 MG IN NACL 0,9% FOR 2880^, Q15
     Route: 042
  9. GLUTATIONE [Concomitant]
     Indication: Chemotherapy side effect prophylaxis
     Dosage: 2.5 MG (2.5 G IN 250 ML NACL 0.9% AS REPORTED)
     Route: 042
  10. DEXAMETHASONE [Concomitant]
     Active Substance: DEXAMETHASONE
     Indication: Chemotherapy side effect prophylaxis
     Dosage: 4 MG, IN 100 ML NACL 0,9%
     Route: 042
  11. LEVOLEUCOVORIN CALCIUM [Concomitant]
     Active Substance: LEVOLEUCOVORIN CALCIUM
     Indication: Chemotherapy side effect prophylaxis
     Dosage: 600 MG, IN 500 ML GLUCOSE 5%
     Route: 042
  12. RAMIPRIL [Concomitant]
     Active Substance: RAMIPRIL
     Indication: Hypertension
     Dosage: UNK
     Route: 048
  13. ATROPINA [ATROPINE] [Concomitant]
     Indication: Chemotherapy side effect prophylaxis
     Dosage: 0.5 MG
     Route: 058

REACTIONS (2)
  - Pruritus [Recovered/Resolved]
  - Off label use [Unknown]

NARRATIVE: CASE EVENT DATE: 20240708
